FAERS Safety Report 12224886 (Version 1)
Quarter: 2016Q1

REPORT INFORMATION
  Report Type: Spontaneous
  Country: US (occurrence: US)
  Receive Date: 20160331
  Receipt Date: 20160331
  Transmission Date: 20160526
  Serious: No
  Sender: FDA-Public Use
  Company Number: US-PFIZER INC-2016143625

PATIENT

DRUGS (3)
  1. FISH OIL [Interacting]
     Active Substance: FISH OIL
     Dosage: UNK
  2. LIPITOR [Suspect]
     Active Substance: ATORVASTATIN CALCIUM
     Dosage: UNK
  3. COQ 10 [Interacting]
     Active Substance: UBIDECARENONE
     Dosage: UNK

REACTIONS (3)
  - Drug interaction [Unknown]
  - Muscle spasms [Unknown]
  - Myalgia [Unknown]
